FAERS Safety Report 9515103 (Version 1)
Quarter: 2013Q1

REPORT INFORMATION
  Report Type: Spontaneous
  Country: US (occurrence: None)
  Receive Date: 20130305
  Receipt Date: 20130305
  Transmission Date: 20140127
  Serious: Yes (Other)
  Sender: FDA-Public Use
  Company Number: 163-21880-12101781

PATIENT
  Age: 58 Year
  Sex: Male

DRUGS (15)
  1. REVLIMID (LENALIDOMIDE) (25 MILLIGRAM, CAPSULES) [Suspect]
     Indication: PLASMA CELL MYELOMA
     Dosage: 25 MG, 21 IN 21 D, PO
     Route: 048
     Dates: start: 20110428, end: 20120914
  2. OXYCONTIN (OXYCODONE HYDROCHLORIDE) (TABLETS) [Concomitant]
  3. OXYCODONE + ACETAMINOPHEN (OXYCOCET) (UNKNOWN) [Concomitant]
  4. GABAPENTIN (GABAPENTIN) (CAPSULES) [Concomitant]
  5. FUROSEMIDE (FUROSEMIDE) (TABLETS) [Concomitant]
  6. METAXALONE (METAXALONE) (TABLETS) [Concomitant]
  7. CARVEDILOL (CARVEDILOL) (TABLETS) [Concomitant]
  8. ACYCLOVIR (ACICLOVIR) (TABLETS) [Concomitant]
  9. ONDANSETRON (ONDANSETRON) (TABLETS) [Concomitant]
  10. ZOFRAN (ONDANSETRON HYDROCHLORIDE) (TABLETS) [Concomitant]
  11. ASPIRIN (ACETYLSALICYLIC ACID) (TABLETS) [Concomitant]
  12. NICODERM (NICOTINE) (UNKNOWN) [Concomitant]
  13. NITROGLYCERIN (GLYCERYL TRINITRATE) (UNKNOWN) [Concomitant]
  14. AZITHROMYCIN (AZITHROMYCIN) (TABLETS) [Concomitant]
  15. LIPITOR (ATORVASTATIN) (TABLETS) [Concomitant]

REACTIONS (1)
  - Neutropenia [None]
